FAERS Safety Report 5356586-6 (Version None)
Quarter: 2007Q2

REPORT INFORMATION
  Report Type: 
  Country: None (occurrence: None)
  Receive Date: 20070614
  Receipt Date: 20070606
  Transmission Date: 20071010
  Serious: Yes (Life-Threatening, Hospitalization)
  Sender: FDA-Public Use
  Company Number: HQWYE499606JUN07

PATIENT
  Age: 17 Year
  Sex: Female

DRUGS (3)
  1. AVLOCARDYL [Suspect]
     Indication: MIGRAINE
     Route: 048
     Dates: start: 20061001, end: 20070320
  2. AVLOCARDYL [Suspect]
     Dosage: 1000 MG ONCE
     Route: 048
     Dates: start: 20070321, end: 20070321
  3. ACETAMINOPHEN W/ PROPOXYPHENE HCL [Concomitant]
     Indication: MIGRAINE
     Dosage: NOT PROVIDED
     Route: 048

REACTIONS (8)
  - ANAEMIA [None]
  - BRADYCARDIA [None]
  - CARDIOGENIC SHOCK [None]
  - DISSEMINATED INTRAVASCULAR COAGULATION [None]
  - DYSURIA [None]
  - HAEMOTHORAX [None]
  - OVERDOSE [None]
  - THROMBOSIS [None]
